FAERS Safety Report 7334838-8 (Version None)
Quarter: 2011Q1

REPORT INFORMATION
  Report Type: 
  Country: None (occurrence: None)
  Receive Date: 20110307
  Receipt Date: 20110223
  Transmission Date: 20110831
  Serious: Yes (Hospitalization)
  Sender: FDA-Public Use
  Company Number: PHHO2010JP02740

PATIENT
  Sex: Male
  Weight: 66 kg

DRUGS (24)
  1. RAD001 [Suspect]
     Dosage: 10 MG, DAILY
     Route: 048
     Dates: start: 20101006
  2. PANCREATIN [Concomitant]
  3. MYSLEE [Concomitant]
  4. ADETPHOS [Concomitant]
     Indication: ASTHENOPIA
  5. METHYCOBAL [Concomitant]
     Indication: ASTHENOPIA
  6. NOVORAPID [Concomitant]
     Indication: DIABETES MELLITUS
  7. RAD001 [Suspect]
     Indication: PANCREATIC NEUROENDOCRINE TUMOUR
     Dosage: 10 MG, DAILY
     Route: 048
     Dates: start: 20091218, end: 20100929
  8. ZOMETA [Concomitant]
     Indication: METASTASES TO BONE
     Dosage: UNK
     Dates: start: 20090407
  9. SELBEX [Concomitant]
     Indication: GASTRITIS PROPHYLAXIS
  10. BASEN [Concomitant]
     Indication: DIABETES MELLITUS
  11. PENTAZOCINE LACTATE [Concomitant]
  12. CABASER [Concomitant]
     Dosage: UNK
     Dates: start: 20090627
  13. PLACEBO [Suspect]
     Indication: PANCREATIC NEUROENDOCRINE TUMOUR
     Dosage: PLACEBO
     Route: 048
     Dates: start: 20090402, end: 20091217
  14. VITANEURIN [Concomitant]
     Indication: ASTHENOPIA
  15. SANDOSTATIN LAR [Concomitant]
     Indication: PANCREATIC NEUROENDOCRINE TUMOUR
     Dosage: UNK
     Dates: start: 20080823
  16. CINAL [Concomitant]
     Indication: ASTHENOPIA
  17. TRYPTANOL [Concomitant]
     Indication: HEADACHE
  18. OPSO DAINIPPON [Concomitant]
  19. SERENACE [Concomitant]
     Dosage: UNK
     Dates: start: 20100622
  20. PANCREAZE [Concomitant]
  21. ROCALTROL [Concomitant]
  22. LOXOPROFEN [Concomitant]
     Indication: PAIN
  23. KETOPROFEN [Concomitant]
     Indication: PAIN
  24. MUCOSTA [Concomitant]
     Dosage: UNK
     Dates: start: 20100120

REACTIONS (6)
  - METASTASES TO BONE [None]
  - PAIN [None]
  - DEHYDRATION [None]
  - SPINAL COMPRESSION FRACTURE [None]
  - ABDOMINAL PAIN [None]
  - MUSCULOSKELETAL PAIN [None]
